FAERS Safety Report 17144269 (Version 1)
Quarter: 2019Q4

REPORT INFORMATION
  Report Type: Report from Study
  Country: US (occurrence: US)
  Receive Date: 20191212
  Receipt Date: 20191212
  Transmission Date: 20200122
  Serious: Yes (Hospitalization)
  Sender: FDA-Public Use
  Company Number: US-MYLANLABS-2019M1120603

PATIENT
  Sex: Male

DRUGS (1)
  1. AMBRISENTAN TABLETS [Suspect]
     Active Substance: AMBRISENTAN
     Indication: PULMONARY ARTERIAL HYPERTENSION
     Dosage: 10 MILLIGRAM, QD, DAILY

REACTIONS (1)
  - Thrombosis [Recovered/Resolved]
